FAERS Safety Report 16979546 (Version 1)
Quarter: 2019Q4

REPORT INFORMATION
  Report Type: Spontaneous
  Country: US (occurrence: US)
  Receive Date: 20191031
  Receipt Date: 20191031
  Transmission Date: 20200122
  Serious: No
  Sender: FDA-Public Use
  Company Number: US-SOFGEN PHARMACEUTICALS, LLC-2076263

PATIENT
  Age: 52 Year
  Sex: Female
  Weight: 54.42 kg

DRUGS (1)
  1. IBUPROFEN. [Suspect]
     Active Substance: IBUPROFEN
     Indication: ARTHRALGIA
     Route: 048
     Dates: start: 20190901, end: 20191009

REACTIONS (1)
  - Nail discolouration [Recovered/Resolved]

NARRATIVE: CASE EVENT DATE: 20190926
